FAERS Safety Report 7274551-9 (Version None)
Quarter: 2011Q1

REPORT INFORMATION
  Report Type: 
  Country: None (occurrence: None)
  Receive Date: 20110201
  Receipt Date: 20110201
  Transmission Date: 20110831
  Serious: Yes (Hospitalization)
  Sender: FDA-Public Use
  Company Number: None

PATIENT
  Age: 64 Year
  Sex: Male
  Weight: 62 kg

DRUGS (7)
  1. ENSURE [Concomitant]
  2. TARCEVA [Suspect]
     Indication: LIP AND/OR ORAL CAVITY CANCER
     Dosage: 150 MG DAILY PO
     Route: 048
     Dates: start: 20110118
  3. TORISEL [Suspect]
     Dosage: 5MG DWEEKLY IV
     Route: 042
     Dates: start: 20110111
  4. ROXICET [Concomitant]
  5. OXYCODONE [Concomitant]
  6. FENTANYL [Concomitant]
  7. MAGIC MOUTHWASH [Concomitant]

REACTIONS (7)
  - PANCYTOPENIA [None]
  - HEPATIC ENZYME INCREASED [None]
  - CATHETER SITE INFLAMMATION [None]
  - DIARRHOEA [None]
  - BACTERAEMIA [None]
  - BLOOD POTASSIUM DECREASED [None]
  - CATHETER SITE ERYTHEMA [None]
